FAERS Safety Report 20775781 (Version 1)
Quarter: 2022Q2

REPORT INFORMATION
  Report Type: Spontaneous
  Country: GB (occurrence: GB)
  Receive Date: 20220502
  Receipt Date: 20220502
  Transmission Date: 20220721
  Serious: Yes (Death, Other)
  Sender: FDA-Public Use
  Company Number: None

PATIENT
  Age: 82 Year
  Sex: Female

DRUGS (1)
  1. LORAZEPAM [Suspect]
     Active Substance: LORAZEPAM
     Indication: Seizure
     Dosage: 4 MG DILUTED WITH 10ML WATER
     Route: 042

REACTIONS (7)
  - Death [Fatal]
  - Drug dose titration not performed [Unknown]
  - Product preparation issue [Unknown]
  - Product administered by wrong person [Unknown]
  - Overdose [Unknown]
  - Respiratory rate decreased [Not Recovered/Not Resolved]
  - Coma scale abnormal [Not Recovered/Not Resolved]

NARRATIVE: CASE EVENT DATE: 20210427
